FAERS Safety Report 18898781 (Version 1)
Quarter: 2021Q1

REPORT INFORMATION
  Report Type: Spontaneous
  Country: US (occurrence: US)
  Receive Date: 20210216
  Receipt Date: 20210216
  Transmission Date: 20210420
  Serious: No
  Sender: FDA-Public Use
  Company Number: US-SA-2021SA049802

PATIENT
  Age: 65 Year
  Sex: Female

DRUGS (15)
  1. DUPIXENT [Suspect]
     Active Substance: DUPILUMAB
     Indication: DERMATITIS CONTACT
     Dosage: 300 MG, QOW
     Dates: start: 20200516
  2. HYDROXYZINE HCL [Concomitant]
     Active Substance: HYDROXYZINE HYDROCHLORIDE
  3. AMOXICILLIN. [Concomitant]
     Active Substance: AMOXICILLIN
  4. XYZAL [Concomitant]
     Active Substance: LEVOCETIRIZINE DIHYDROCHLORIDE
  5. QVAR [Concomitant]
     Active Substance: BECLOMETHASONE DIPROPIONATE
  6. PEPCID AC [Concomitant]
     Active Substance: FAMOTIDINE
  7. VITAMIN D NOS [Concomitant]
     Active Substance: VITAMIN D NOS
  8. CENTRUM SILVER +50 [Concomitant]
     Active Substance: MINERALS\VITAMINS
  9. LIPITOR [Concomitant]
     Active Substance: ATORVASTATIN CALCIUM
  10. CALCIUM 500+D [Concomitant]
     Active Substance: CALCIUM\VITAMIN D
  11. CITALOPRAM [Concomitant]
     Active Substance: CITALOPRAM HYDROBROMIDE
  12. VITAMIN B COMPLEX [Concomitant]
     Active Substance: CYANOCOBALAMIN\DEXPANTHENOL\NIACINAMIDE\PYRIDOXINE HYDROCHLORIDE\RIBOFLAVIN 5^-PHOSPHATE SODIUM\THIAMINE HYDROCHLORIDE\VITAMIN B COMPLEX
  13. IBUPROFEN. [Concomitant]
     Active Substance: IBUPROFEN
  14. TRAMADOL HCL [Concomitant]
     Active Substance: TRAMADOL HYDROCHLORIDE
  15. LYRICA [Concomitant]
     Active Substance: PREGABALIN

REACTIONS (2)
  - Product use in unapproved indication [Unknown]
  - Pain [Unknown]

NARRATIVE: CASE EVENT DATE: 20200516
